FAERS Safety Report 7129166-X (Version None)
Quarter: 2010Q4

REPORT INFORMATION
  Report Type: 
  Country: None (occurrence: None)
  Receive Date: 20101130
  Receipt Date: 20101115
  Transmission Date: 20110411
  Serious: Yes (Other)
  Sender: FDA-Public Use
  Company Number: CH-MERCK-1010USA01089

PATIENT
  Age: 36 Year
  Sex: Male

DRUGS (4)
  1. ISENTRESS [Suspect]
     Indication: PROPHYLAXIS
     Route: 048
     Dates: start: 20100810, end: 20100903
  2. TRUVADA [Concomitant]
     Indication: PROPHYLAXIS
     Route: 048
     Dates: start: 20100810, end: 20100903
  3. COMBIVIR [Concomitant]
     Indication: PROPHYLAXIS
     Route: 048
     Dates: start: 20100808, end: 20100809
  4. KALETRA [Concomitant]
     Indication: PROPHYLAXIS
     Route: 048
     Dates: start: 20100808, end: 20100809

REACTIONS (1)
  - NEUROPATHY PERIPHERAL [None]
